FAERS Safety Report 17919197 (Version 2)
Quarter: 2020Q3

REPORT INFORMATION
  Report Type: Report from Study
  Country: US (occurrence: US)
  Receive Date: 20200619
  Receipt Date: 20200701
  Transmission Date: 20201103
  Serious: Yes (Disabling, Other)
  Sender: FDA-Public Use
  Company Number: NVSC2020US170567

PATIENT
  Age: 55 Year
  Sex: Male
  Weight: 92.97 kg

DRUGS (1)
  1. COSENTYX [Suspect]
     Active Substance: SECUKINUMAB
     Indication: PSORIASIS
     Dosage: 300 MG, QMO
     Route: 065
     Dates: start: 20190628

REACTIONS (2)
  - Guillain-Barre syndrome [Not Recovered/Not Resolved]
  - Disability [Not Recovered/Not Resolved]

NARRATIVE: CASE EVENT DATE: 20191214
